FAERS Safety Report 6601604-8 (Version None)
Quarter: 2010Q1

REPORT INFORMATION
  Report Type: 
  Country: None (occurrence: None)
  Receive Date: 20100225
  Receipt Date: 20100217
  Transmission Date: 20100710
  Serious: Yes (Hospitalization)
  Sender: FDA-Public Use
  Company Number: US-ROCHE-645058

PATIENT
  Sex: Female
  Weight: 140.2 kg

DRUGS (2)
  1. PEGASYS [Suspect]
     Indication: HEPATITIS C
     Dosage: FORM: PRE-FILLED SYRINGE.
     Route: 065
     Dates: start: 20090710, end: 20091225
  2. RIBAVIRIN [Suspect]
     Indication: HEPATITIS C
     Dosage: NOTE: DIVIDED DOSES
     Route: 065
     Dates: start: 20090710, end: 20091225

REACTIONS (9)
  - ALOPECIA [None]
  - AORTIC STENOSIS [None]
  - ARTERIAL DISORDER [None]
  - CHEST PAIN [None]
  - DIARRHOEA [None]
  - DYSPNOEA [None]
  - HEART RATE DECREASED [None]
  - HEPATIC ENZYME INCREASED [None]
  - HYPERTENSION [None]
